FAERS Safety Report 4838529-4 (Version None)
Quarter: 2005Q4

REPORT INFORMATION
  Report Type: 
  Country: None (occurrence: None)
  Receive Date: 20051129
  Receipt Date: 20050913
  Transmission Date: 20060501
  Serious: Yes (Hospitalization, Other)
  Sender: FDA-Public Use
  Company Number: US-MERCK-0509USA01797

PATIENT
  Age: 48 Year
  Sex: Female
  Weight: 72 kg

DRUGS (11)
  1. XANAX [Concomitant]
     Route: 048
  2. FOSAMAX [Suspect]
     Indication: OSTEOPOROSIS
     Route: 048
     Dates: end: 19980301
  3. FOSAMAX [Suspect]
     Route: 048
  4. FOSAMAX [Suspect]
     Indication: HYPERCALCAEMIA
     Route: 048
     Dates: end: 19980301
  5. FOSAMAX [Suspect]
     Route: 048
  6. PERI-COLACE [Concomitant]
     Route: 048
  7. PROVENTIL [Concomitant]
     Route: 065
  8. ARIMIDEX [Concomitant]
     Route: 048
  9. MS CONTIN [Concomitant]
     Route: 048
  10. COMPAZINE [Concomitant]
     Indication: NAUSEA
     Route: 048
  11. ZOFRAN [Concomitant]
     Indication: NAUSEA
     Route: 048

REACTIONS (15)
  - BONE LESION [None]
  - CATARACT [None]
  - CEREBROVASCULAR ACCIDENT [None]
  - DENTAL CARIES [None]
  - DEPRESSION [None]
  - EXOSTOSIS [None]
  - JOINT EFFUSION [None]
  - MASTOIDITIS [None]
  - OSTEONECROSIS [None]
  - PALMAR-PLANTAR ERYTHRODYSAESTHESIA SYNDROME [None]
  - PARAESTHESIA [None]
  - PERIODONTAL DISEASE [None]
  - RADIATION SKIN INJURY [None]
  - STRESS INCONTINENCE [None]
  - WEIGHT INCREASED [None]
